FAERS Safety Report 9112051 (Version 1)
Quarter: 2013Q1

REPORT INFORMATION
  Report Type: Spontaneous
  Country: US (occurrence: US)
  Receive Date: 20130219
  Receipt Date: 20130219
  Transmission Date: 20140127
  Serious: No
  Sender: FDA-Public Use
  Company Number: US-BRISTOL-MYERS SQUIBB COMPANY-16544769

PATIENT
  Age: 57 Year
  Sex: Female
  Weight: 54.42 kg

DRUGS (6)
  1. ORENCIA FOR INJ 250 MG/VIAL [Suspect]
     Dosage: LAST INF:29MAR12
     Route: 042
  2. CELEBREX [Concomitant]
  3. ALTACE [Concomitant]
  4. DOMPERIDONE [Concomitant]
  5. ZYRTEC [Concomitant]
  6. REGLAN [Concomitant]

REACTIONS (2)
  - Drug ineffective [Unknown]
  - Anxiety [Unknown]
